FAERS Safety Report 8352194-3 (Version None)
Quarter: 2012Q2

REPORT INFORMATION
  Report Type: 
  Country: None (occurrence: None)
  Receive Date: 20120511
  Receipt Date: 20120507
  Transmission Date: 20120825
  Serious: Yes (Other)
  Sender: FDA-Public Use
  Company Number: BR-SANOFI-AVENTIS-2012SA032333

PATIENT
  Age: 69 Year
  Sex: Female
  Weight: 53 kg

DRUGS (13)
  1. CLONAZEPAM [Concomitant]
     Route: 048
     Dates: start: 20100101
  2. METOPROLOL SUCCINATE [Concomitant]
     Dates: start: 20090101
  3. MIRTAZAPINE [Concomitant]
     Indication: DEPRESSION
     Dates: start: 20100101
  4. TRIMETAZIDINE HYDROCHLORIDE [Concomitant]
     Route: 048
     Dates: start: 20090101
  5. WELLBUTRIN [Concomitant]
     Indication: DEPRESSION
     Route: 048
     Dates: start: 20100101
  6. DIOVAN [Concomitant]
     Indication: BLOOD PRESSURE
     Route: 048
  7. NOVORAPID [Concomitant]
     Dates: start: 20080101
  8. LEVOTHYROXINE SODIUM [Concomitant]
     Indication: THYROID DISORDER
     Dosage: STRENGTH 25 MCG
     Route: 048
     Dates: start: 19970101
  9. LEVOTHYROXINE SODIUM [Concomitant]
     Dosage: STRENGTH 50 MCG
     Route: 048
     Dates: start: 19970101
  10. LANTUS [Suspect]
     Route: 065
     Dates: start: 20070101
  11. VYTORIN [Concomitant]
     Route: 048
     Dates: start: 20100101
  12. ASPIRIN [Concomitant]
     Route: 048
     Dates: start: 20100101
  13. CLIKSTAR [Suspect]
     Indication: DEVICE THERAPY
     Dates: start: 20120501

REACTIONS (2)
  - CHEST PAIN [None]
  - MYOCARDIAL INFARCTION [None]
